FAERS Safety Report 6812185-8 (Version None)
Quarter: 2010Q3

REPORT INFORMATION
  Report Type: 
  Country: None (occurrence: None)
  Receive Date: 20100701
  Receipt Date: 20100622
  Transmission Date: 20110219
  Serious: Yes (Other)
  Sender: FDA-Public Use
  Company Number: FR-ASTRAZENECA-2010SE29438

PATIENT
  Age: 2 Month
  Sex: Female

DRUGS (1)
  1. EMLA [Suspect]
     Indication: LOCAL ANAESTHESIA
     Dosage: 2 PATCHES (ONE PATCH ON EACH BOTTOM)
     Route: 061
     Dates: start: 20100101, end: 20100101

REACTIONS (3)
  - APPLICATION SITE VESICLES [None]
  - BRADYCARDIA [None]
  - MALAISE [None]
